FAERS Safety Report 24705980 (Version 1)
Quarter: 2024Q4

REPORT INFORMATION
  Report Type: Spontaneous
  Country: US (occurrence: US)
  Receive Date: 20241206
  Receipt Date: 20241206
  Transmission Date: 20250115
  Serious: No
  Sender: GREER
  Company Number: US-STALCOR-2024-AER-02377

PATIENT
  Sex: Female

DRUGS (1)
  1. PALFORZIA [Suspect]
     Active Substance: PEANUT
     Indication: Food allergy
     Dosage: 20MG LVL 4: MIX CONTENTS OF CAPSULED WELL WITH SEMISOLID FOOD AS DIRECTED AND CONSUME ONCE DAILY AT
     Route: 048

REACTIONS (1)
  - Gastroenteritis viral [Not Recovered/Not Resolved]
